FAERS Safety Report 8459771-X (Version None)
Quarter: 2012Q2

REPORT INFORMATION
  Report Type: 
  Country: None (occurrence: None)
  Receive Date: 20120622
  Receipt Date: 20120618
  Transmission Date: 20120825
  Serious: Yes (Hospitalization, Other)
  Sender: FDA-Public Use
  Company Number: US-MERCK-1202USA02449

PATIENT
  Age: 54 Year
  Sex: Female
  Weight: 63 kg

DRUGS (18)
  1. FOSAMAX [Suspect]
     Route: 048
     Dates: start: 20071001, end: 20080201
  2. FOSAMAX PLUS D [Suspect]
     Route: 048
     Dates: start: 20070501, end: 20071001
  3. VITAMINS (UNSPECIFIED) [Concomitant]
     Route: 065
     Dates: start: 19850101
  4. CALCIUM (UNSPECIFIED) [Concomitant]
     Route: 065
     Dates: start: 19850101
  5. FOSAMAX [Suspect]
     Route: 048
     Dates: start: 20011201, end: 20051001
  6. VITAMIN D (UNSPECIFIED) [Concomitant]
     Route: 065
     Dates: start: 19960101, end: 20110101
  7. SYNTHROID [Concomitant]
     Indication: HYPOTHYROIDISM
     Route: 065
     Dates: start: 19950401
  8. HORMONES (UNSPECIFIED) [Concomitant]
     Route: 065
     Dates: start: 19980201, end: 20101101
  9. FOSAMAX PLUS D [Suspect]
     Route: 048
     Dates: start: 20080901, end: 20100201
  10. FOSAMAX PLUS D [Suspect]
     Indication: OSTEOPENIA
     Route: 048
     Dates: start: 20051101, end: 20060801
  11. FOSAMAX PLUS D [Suspect]
     Indication: OSTEOPOROSIS
     Route: 048
     Dates: start: 20051101, end: 20060801
  12. VITAMIN E [Concomitant]
     Route: 065
     Dates: start: 19980101, end: 19990101
  13. FOSAMAX [Suspect]
     Indication: OSTEOPENIA
     Route: 048
     Dates: start: 19991214, end: 20011101
  14. FOSAMAX [Suspect]
     Route: 048
     Dates: start: 20011201, end: 20051001
  15. FOSAMAX PLUS D [Suspect]
     Route: 048
     Dates: start: 20070501, end: 20071001
  16. FOSAMAX [Suspect]
     Indication: OSTEOPOROSIS
     Route: 048
     Dates: start: 19991214, end: 20011101
  17. FOSAMAX [Suspect]
     Route: 048
     Dates: start: 20071001, end: 20080201
  18. FOSAMAX PLUS D [Suspect]
     Route: 048
     Dates: start: 20080901, end: 20100201

REACTIONS (31)
  - FALL [None]
  - OESOPHAGITIS [None]
  - HYPERCHOLESTEROLAEMIA [None]
  - FEMUR FRACTURE [None]
  - PAIN IN EXTREMITY [None]
  - VERTIGO [None]
  - POLYP [None]
  - HYPERPARATHYROIDISM [None]
  - MELANOCYTIC NAEVUS [None]
  - LIGAMENT SPRAIN [None]
  - SINUSITIS [None]
  - DRUG HYPERSENSITIVITY [None]
  - ARTHRALGIA [None]
  - LOW TURNOVER OSTEOPATHY [None]
  - TRAUMATIC HAEMATOMA [None]
  - GASTRITIS [None]
  - HYDROMETRA [None]
  - KERATOSIS PILARIS [None]
  - VITILIGO [None]
  - TOOTH DISORDER [None]
  - ADVERSE EVENT [None]
  - CONTUSION [None]
  - LIMB INJURY [None]
  - HYPERTHYROIDISM [None]
  - ATRIAL FIBRILLATION [None]
  - TIBIA FRACTURE [None]
  - ACUTE STRESS DISORDER [None]
  - MIGRAINE [None]
  - IRON DEFICIENCY ANAEMIA [None]
  - VITAMIN D DEFICIENCY [None]
  - BLADDER IRRITATION [None]
